FAERS Safety Report 9024404 (Version 2)
Quarter: 2013Q4

REPORT INFORMATION
  Report Type: Spontaneous
  Country: BR (occurrence: BR)
  Receive Date: 20130121
  Receipt Date: 20131017
  Transmission Date: 20140711
  Serious: Yes (Other)
  Sender: FDA-Public Use
  Company Number: BR-BAYER-2013-006560

PATIENT
  Sex: Female

DRUGS (2)
  1. YASMIN [Suspect]
     Route: 048
  2. ISOXSUPRINE [Concomitant]
     Indication: PREMATURE DELIVERY

REACTIONS (4)
  - Pregnancy on oral contraceptive [Recovered/Resolved]
  - Haemorrhage in pregnancy [None]
  - Drug ineffective [None]
  - Cervical incompetence [None]
